FAERS Safety Report 17508900 (Version 1)
Quarter: 2020Q1

REPORT INFORMATION
  Report Type: Spontaneous
  Country: CN (occurrence: CN)
  Receive Date: 20200306
  Receipt Date: 20200306
  Transmission Date: 20200409
  Serious: Yes (Hospitalization)
  Sender: FDA-Public Use
  Company Number: CN-BAYER-2020-039348

PATIENT
  Age: 41 Year
  Sex: Male
  Weight: 69 kg

DRUGS (1)
  1. NEXAVAR [Suspect]
     Active Substance: SORAFENIB
     Indication: HEPATIC CANCER
     Dosage: 0.4 G, BID
     Route: 048
     Dates: start: 20200121, end: 20200219

REACTIONS (7)
  - Transaminases increased [Recovering/Resolving]
  - Skin laceration [Recovering/Resolving]
  - Telangiectasia [Recovering/Resolving]
  - Blood bilirubin increased [Recovering/Resolving]
  - Skin hypertrophy [Recovering/Resolving]
  - Hyperkeratosis [Recovering/Resolving]
  - Dry skin [Recovering/Resolving]

NARRATIVE: CASE EVENT DATE: 20200219
